FAERS Safety Report 5929411-X (Version None)
Quarter: 2008Q3

REPORT INFORMATION
  Report Type: 
  Country: None (occurrence: None)
  Receive Date: 20080924
  Receipt Date: 20080605
  Transmission Date: 20090109
  Serious: Yes (Other)
  Sender: FDA-Public Use
  Company Number: A03200802255

PATIENT
  Age: 47 Year
  Sex: Female
  Weight: 67.586 kg

DRUGS (10)
  1. AMBIEN CR [Suspect]
     Indication: DEPRESSION
     Dosage: ORAL
     Route: 048
     Dates: start: 20070101, end: 20080601
  2. REBIF [Suspect]
     Indication: MULTIPLE SCLEROSIS
     Dosage: 44 MCG 3/WEEK - SUBCUTANEOUS
     Route: 058
     Dates: start: 20070723, end: 20080101
  3. REBIF [Suspect]
     Indication: MULTIPLE SCLEROSIS
     Dosage: 22 MCG 3/WEEK - SUBCUTANEOUS
     Route: 058
     Dates: start: 20080101, end: 20080301
  4. CYMBALTA [Suspect]
     Indication: DEPRESSION
     Dosage: 60 MG QD
     Dates: start: 20070101, end: 20080501
  5. CYMBALTA [Suspect]
     Indication: DEPRESSION
     Dosage: 30 MG QD
     Dates: start: 20080501
  6. CELECOXIB [Concomitant]
  7. ESZOPICLONE [Concomitant]
  8. TIZANIDINE HYDROCHLORIDE [Concomitant]
  9. TRAMADOL HYDROCHLORIDE [Concomitant]
  10. TRAZODONE HCL [Concomitant]

REACTIONS (3)
  - ABNORMAL BEHAVIOUR [None]
  - AMNESIA [None]
  - SUICIDE ATTEMPT [None]
